FAERS Safety Report 7823593-0 (Version None)
Quarter: 2011Q4

REPORT INFORMATION
  Report Type: 
  Country: None (occurrence: None)
  Receive Date: 20111019
  Receipt Date: 20111012
  Transmission Date: 20120403
  Serious: Yes (Other)
  Sender: FDA-Public Use
  Company Number: US-PFIZER INC-2011244877

PATIENT

DRUGS (1)
  1. SUTENT [Suspect]
     Dosage: 2 WEEKS ON, 1 WEEK OFF

REACTIONS (2)
  - HYPOGLYCAEMIA [None]
  - DIARRHOEA [None]
